FAERS Safety Report 17386690 (Version 1)
Quarter: 2020Q1

REPORT INFORMATION
  Report Type: Spontaneous
  Country: CN (occurrence: CN)
  Receive Date: 20200206
  Receipt Date: 20200206
  Transmission Date: 20200409
  Serious: Yes (Hospitalization)
  Sender: FDA-Public Use
  Company Number: CN-JUBILANT CADISTA PHARMACEUTICALS-2020JUB00045

PATIENT
  Age: 15 Year
  Sex: Male

DRUGS (5)
  1. DIURETICS [Concomitant]
     Active Substance: UNSPECIFIED INGREDIENT
     Indication: PALPITATIONS
  2. VALSARTAN AND SACUBITRIL [Suspect]
     Active Substance: SACUBITRIL\VALSARTAN
     Indication: CARDIOMYOPATHY
     Route: 065
  3. DIGOXIN. [Concomitant]
     Active Substance: DIGOXIN
     Indication: ORTHOPNOEA
     Route: 065
  4. DIURETICS [Concomitant]
     Active Substance: UNSPECIFIED INGREDIENT
     Indication: ORTHOPNOEA
     Route: 065
  5. DIGOXIN. [Concomitant]
     Active Substance: DIGOXIN
     Indication: PALPITATIONS

REACTIONS (5)
  - Hypotension [Recovered/Resolved]
  - Palpitations [Recovered/Resolved]
  - Atrioventricular block second degree [Recovered/Resolved]
  - Orthopnoea [Recovered/Resolved]
  - Atrial tachycardia [Recovered/Resolved]
